FAERS Safety Report 23363463 (Version 7)
Quarter: 2025Q1

REPORT INFORMATION
  Report Type: Spontaneous
  Country: US (occurrence: US)
  Receive Date: 20240103
  Receipt Date: 20250326
  Transmission Date: 20250409
  Serious: Yes (Hospitalization, Other)
  Sender: PFIZER
  Company Number: US-PFIZER INC-PV202300124936

PATIENT
  Age: 68 Year
  Sex: Female
  Weight: 70.8 kg

DRUGS (3)
  1. LORBRENA [Suspect]
     Active Substance: LORLATINIB
     Indication: Non-small cell lung cancer metastatic
     Dosage: 100 MG TABLET, TAKE 1 TABLET BY MOUTH DAILY/1 PILL (100MG) BY MOUTH DAILY
     Route: 048
     Dates: start: 202208
  2. TYLENOL [Concomitant]
     Active Substance: ACETAMINOPHEN
  3. IBUPROFEN [Concomitant]
     Active Substance: IBUPROFEN

REACTIONS (4)
  - Cerebrovascular accident [Unknown]
  - Hip arthroplasty [Unknown]
  - Sleep disorder [Unknown]
  - Diarrhoea [Unknown]

NARRATIVE: CASE EVENT DATE: 20230726
